FAERS Safety Report 10057254 (Version 1)
Quarter: 2014Q2

REPORT INFORMATION
  Report Type: Spontaneous
  Country: US (occurrence: US)
  Receive Date: 20140403
  Receipt Date: 20140403
  Transmission Date: 20141212
  Serious: No
  Sender: FDA-Public Use
  Company Number: US-009507513-1404USA000816

PATIENT
  Sex: Female

DRUGS (1)
  1. CLARITIN REDITABS [Suspect]
     Indication: EYE PRURITUS
     Dosage: 10 MG, ONCE
     Route: 048
     Dates: start: 20140318

REACTIONS (1)
  - Drug ineffective [Unknown]
